FAERS Safety Report 13182048 (Version 1)
Quarter: 2017Q1

REPORT INFORMATION
  Report Type: Report from Study
  Country: None (occurrence: BR)
  Receive Date: 20170202
  Receipt Date: 20170202
  Transmission Date: 20170428
  Serious: Yes (Other)
  Sender: FDA-Public Use
  Company Number: BR-ABBVIE-17P-020-1831882-00

PATIENT
  Sex: Female
  Weight: 60 kg

DRUGS (9)
  1. METFORMIN [Concomitant]
     Active Substance: METFORMIN HYDROCHLORIDE
     Indication: DIABETES MELLITUS
     Dosage: DAILY DOSE: 1700MG;AFTER BREAKFAST AND AFTER LUNCH
     Dates: start: 1986
  2. SOY ISOFLAVONE [Concomitant]
     Active Substance: ISOFLAVONES SOY
     Indication: PREMATURE MENOPAUSE
     Dosage: 1 TABLET IN THE MORNING
     Dates: start: 1998
  3. SOY ISOFLAVONE [Concomitant]
     Active Substance: ISOFLAVONES SOY
     Indication: MENOPAUSE
  4. ENALAPRIL [Concomitant]
     Active Substance: ENALAPRIL
     Indication: BLOOD PRESSURE ABNORMAL
     Dosage: DAILY DOSE: 10 MG;AT BREAKFAST
     Dates: start: 2001
  5. GALVUS [Concomitant]
     Active Substance: VILDAGLIPTIN
     Indication: DIABETES MELLITUS
     Dosage: DAILY DOSE:50 UNKNOWN;BEFORE LUNCH: FORM STRENGTH: 50 UNKNOWN
     Dates: start: 1986
  6. ROHYPNOL [Concomitant]
     Active Substance: FLUNITRAZEPAM
     Indication: INSOMNIA
  7. SYNTHROID [Suspect]
     Active Substance: LEVOTHYROXINE SODIUM
     Indication: HYPOTHYROIDISM
     Dosage: DAILY DOSE: 75 MCG;MORNING (FASTING)
     Route: 048
  8. AMARYL [Concomitant]
     Active Substance: GLIMEPIRIDE
     Indication: DIABETES MELLITUS
     Dosage: DAILY DOSE:6 MG; MORNING/BEFORE BREAKFAST/AFTER SYNTROID
     Dates: start: 1986
  9. OSTEO BI-FLEX [Concomitant]
     Active Substance: CHONDROITIN SULFATE A\GLUCOSAMINE
     Indication: DYSARTHRIA
     Dosage: DAILY DOSE: 1 TABLET;MORNING
     Dates: start: 2012

REACTIONS (7)
  - Facial bones fracture [Recovered/Resolved]
  - Pain [Not Recovered/Not Resolved]
  - Throat tightness [Unknown]
  - Spinal deformity [Not Recovered/Not Resolved]
  - Drug dose omission [Unknown]
  - Intentional product misuse [Unknown]
  - Fall [Recovered/Resolved]
